FAERS Safety Report 4518042-4 (Version None)
Quarter: 2004Q4

REPORT INFORMATION
  Report Type: 
  Country: None (occurrence: None)
  Receive Date: 20041130
  Receipt Date: 20041110
  Transmission Date: 20050328
  Serious: Yes (Hospitalization)
  Sender: FDA-Public Use
  Company Number: 206149

PATIENT
  Age: 54 Year
  Sex: Female
  Weight: 53.5244 kg

DRUGS (2)
  1. AVONEX [Suspect]
     Indication: MULTIPLE SCLEROSIS
     Dosage: 30 UG; QW; IM
     Route: 030
     Dates: start: 20020101
  2. VALIUM [Concomitant]

REACTIONS (9)
  - ANXIETY [None]
  - ARTHRALGIA [None]
  - ASTHENIA [None]
  - CHEST PAIN [None]
  - CONDITION AGGRAVATED [None]
  - DYSPEPSIA [None]
  - MULTIPLE SCLEROSIS [None]
  - NAUSEA [None]
  - URINARY TRACT INFECTION [None]
